FAERS Safety Report 22605249 (Version 1)
Quarter: 2023Q2

REPORT INFORMATION
  Report Type: Spontaneous
  Country: US (occurrence: None)
  Receive Date: 20230614
  Receipt Date: 20230614
  Transmission Date: 20230722
  Serious: No
  Sender: FDA-Public Use
  Company Number: None

PATIENT
  Sex: Female

DRUGS (17)
  1. EVEROLIMUS [Suspect]
     Active Substance: EVEROLIMUS
     Indication: Metastases to bone
     Dosage: OTHER QUANTITY : 1T;?FREQUENCY : DAILY;?
     Route: 048
  2. VITAMINS [Concomitant]
     Active Substance: VITAMINS
  3. CALCIUM [Concomitant]
     Active Substance: CALCIUM
  4. METOPROLOL [Concomitant]
     Active Substance: METOPROLOL
  5. CALCIUM CITRATE [Concomitant]
     Active Substance: CALCIUM CITRATE
  6. NATURE-THROID [Concomitant]
     Active Substance: THYROID, PORCINE
  7. NORCO [Concomitant]
     Active Substance: ACETAMINOPHEN\HYDROCODONE BITARTRATE
  8. ADVIL [Concomitant]
     Active Substance: IBUPROFEN
  9. GABAPENTIN [Concomitant]
     Active Substance: GABAPENTIN
  10. DIPHENHYDRAMINE [Concomitant]
     Active Substance: DIPHENHYDRAMINE
  11. DILAUDID [Concomitant]
     Active Substance: HYDROMORPHONE HYDROCHLORIDE
  12. DRONABINOL [Concomitant]
     Active Substance: DRONABINOL
  13. HYDROMORPHONE [Concomitant]
     Active Substance: HYDROMORPHONE
  14. PREDNISONE [Concomitant]
     Active Substance: PREDNISONE
  15. ELIQUIS [Concomitant]
     Active Substance: APIXABAN
  16. AMLODIPINE [Concomitant]
     Active Substance: AMLODIPINE BESYLATE
  17. LOSARTAN [Concomitant]
     Active Substance: LOSARTAN

REACTIONS (1)
  - Drug intolerance [None]
